FAERS Safety Report 4895785-4 (Version None)
Quarter: 2006Q1

REPORT INFORMATION
  Report Type: 
  Country: None (occurrence: None)
  Receive Date: 20060124
  Receipt Date: 20050601
  Transmission Date: 20060701
  Serious: Yes (Other)
  Sender: FDA-Public Use
  Company Number: 2006BH000403

PATIENT
  Sex: Female

DRUGS (2)
  1. HEMOFIL [Suspect]
  2. PROPLEX T [Suspect]

REACTIONS (3)
  - HEPATITIS C VIRUS [None]
  - HIV INFECTION [None]
  - SEXUAL TRANSMISSION OF INFECTION [None]
